FAERS Safety Report 15688352 (Version 1)
Quarter: 2018Q4

REPORT INFORMATION
  Report Type: Spontaneous
  Country: US (occurrence: US)
  Receive Date: 20181205
  Receipt Date: 20181205
  Transmission Date: 20190205
  Serious: No
  Sender: FDA-Public Use
  Company Number: US-HIKMA PHARMACEUTICALS USA INC.-US-H14001-18-06081

PATIENT
  Sex: Male
  Weight: 88 kg

DRUGS (1)
  1. IPRATROPIUM [Suspect]
     Active Substance: IPRATROPIUM
     Indication: UPPER-AIRWAY COUGH SYNDROME
     Route: 045
     Dates: start: 20180307

REACTIONS (3)
  - Accidental underdose [Unknown]
  - Upper-airway cough syndrome [Unknown]
  - Condition aggravated [Unknown]
